FAERS Safety Report 16664128 (Version 1)
Quarter: 2019Q3

REPORT INFORMATION
  Report Type: Report from Study
  Country: IT (occurrence: IT)
  Receive Date: 20190802
  Receipt Date: 20190802
  Transmission Date: 20191004
  Serious: Yes (Hospitalization)
  Sender: FDA-Public Use
  Company Number: IT-TEVA-2019-IT-1086736

PATIENT
  Age: 64 Year
  Sex: Male

DRUGS (11)
  1. FOLINA 5 MG CAPSULE MOLLI [Concomitant]
  2. ESAPENT 1000 MG CAPSULE MOLLI [Concomitant]
  3. KETOPROFEN LYSINE [Suspect]
     Active Substance: KETOPROFEN LYSINE
     Indication: MYALGIA
     Dosage: 1 DF
     Route: 048
     Dates: start: 20190604, end: 20190607
  4. PANTOPRAZOLE [Concomitant]
     Active Substance: PANTOPRAZOLE
     Dosage: 20 MG
  5. CARDIOASPIRIN 100 MG COMPRESSE GASTRORESISTENTI [Concomitant]
     Active Substance: ASPIRIN
  6. DULOXETINE HYDROCHLORIDE. [Concomitant]
     Active Substance: DULOXETINE HYDROCHLORIDE
     Dosage: 60 MG
  7. KCL-RETARD 600 MG COMPRESSE A RILASCIO PROLUNGATO [Concomitant]
  8. TRIATEC HCT 5 MG + 25 MG COMPRESSE [Concomitant]
     Active Substance: HYDROCHLOROTHIAZIDE\RAMIPRIL
     Route: 065
  9. TRIATEC  5 MG COMPRESSE [Concomitant]
     Active Substance: RAMIPRIL
  10. EZETROL 10 MG COMPRESSE [Suspect]
     Active Substance: EZETIMIBE
     Indication: HYPERCHOLESTEROLAEMIA
     Dosage: 1 DF
     Route: 048
     Dates: start: 20120601, end: 20190611
  11. BISOPROLOL HEMIFUMARATE [Concomitant]
     Active Substance: BISOPROLOL FUMARATE
     Dosage: 2.5 MG

REACTIONS (4)
  - Hepatic enzyme increased [Recovering/Resolving]
  - Abdominal pain upper [Recovering/Resolving]
  - Nausea [Recovering/Resolving]
  - Hyperbilirubinaemia [Recovering/Resolving]

NARRATIVE: CASE EVENT DATE: 20190611
